FAERS Safety Report 8259874-9 (Version None)
Quarter: 2012Q2

REPORT INFORMATION
  Report Type: 
  Country: None (occurrence: None)
  Receive Date: 20120404
  Receipt Date: 20120329
  Transmission Date: 20120825
  Serious: Yes (Death)
  Sender: FDA-Public Use
  Company Number: US-GLAXOSMITHKLINE-A0972221A

PATIENT
  Age: 84 Year
  Sex: Male
  Weight: 72.7 kg

DRUGS (3)
  1. PREDNISONE TAB [Concomitant]
  2. PROMACTA [Suspect]
     Indication: AUTOIMMUNE THROMBOCYTOPENIA
     Dosage: 50MG PER DAY
     Route: 048
     Dates: start: 20120203, end: 20120325
  3. SINGULAIR [Concomitant]

REACTIONS (1)
  - DEATH [None]
